FAERS Safety Report 23329160 (Version 1)
Quarter: 2023Q4

REPORT INFORMATION
  Report Type: Spontaneous
  Country: CA (occurrence: CA)
  Receive Date: 20231222
  Receipt Date: 20231222
  Transmission Date: 20240110
  Serious: Yes (Other)
  Sender: FDA-Public Use
  Company Number: CA-CELLTRION INC.-2023CA024530

PATIENT

DRUGS (1)
  1. INFLECTRA [Suspect]
     Active Substance: INFLIXIMAB-DYYB
     Indication: Ankylosing spondylitis
     Dosage: 250 MG, 1 EVERY 6 WEEKS
     Route: 041

REACTIONS (6)
  - Chills [Unknown]
  - Dizziness [Unknown]
  - Dyspnoea [Unknown]
  - Feeling cold [Unknown]
  - Nausea [Unknown]
  - Oxygen saturation abnormal [Unknown]
